FAERS Safety Report 8270050-6 (Version None)
Quarter: 2012Q1

REPORT INFORMATION
  Report Type: 
  Country: None (occurrence: None)
  Receive Date: 20120327
  Receipt Date: 20090916
  Transmission Date: 20120608
  Serious: Yes (Other)
  Sender: FDA-Public Use
  Company Number: PHEH2009US09575

PATIENT

DRUGS (1)
  1. GLEEVEC [Suspect]
     Indication: GASTROINTESTINAL STROMAL TUMOUR
     Dosage: 800 MG

REACTIONS (4)
  - NEOPLASM PROGRESSION [None]
  - PANCYTOPENIA [None]
  - WEIGHT DECREASED [None]
  - DYSGEUSIA [None]
